FAERS Safety Report 11634713 (Version 3)
Quarter: 2015Q4

REPORT INFORMATION
  Report Type: Spontaneous
  Country: US (occurrence: None)
  Receive Date: 20151015
  Receipt Date: 20151124
  Transmission Date: 20160304
  Serious: No
  Sender: FDA-Public Use
  Company Number: US-MDT-ADR-2015-01971

PATIENT
  Age: 36 Year
  Sex: Male

DRUGS (2)
  1. LIORESAL [Suspect]
     Active Substance: BACLOFEN
     Dosage: 149.9 MCG/DAY
  2. BACLOFEN INTRATHECAL [Suspect]
     Active Substance: BACLOFEN

REACTIONS (6)
  - Anxiety [None]
  - Insomnia [None]
  - Adverse drug reaction [None]
  - Dyskinesia [None]
  - Pain [None]
  - Condition aggravated [None]
